FAERS Safety Report 17822651 (Version 2)
Quarter: 2020Q3

REPORT INFORMATION
  Report Type: Spontaneous
  Country: AR (occurrence: AR)
  Receive Date: 20200526
  Receipt Date: 20200710
  Transmission Date: 20201102
  Serious: Yes (Life-Threatening, Hospitalization)
  Sender: FDA-Public Use
  Company Number: AR-ASTRAZENECA-2020SE52932

PATIENT
  Age: 891 Month
  Sex: Female

DRUGS (3)
  1. FREVIA [Suspect]
     Active Substance: BUDESONIDE\FORMOTEROL
     Dosage: 160 MCG UNKNOWN UNKNOWN
     Route: 055
     Dates: start: 2018
  2. ENALAPRIL [Concomitant]
     Active Substance: ENALAPRIL
  3. ALPRAZOLAM. [Concomitant]
     Active Substance: ALPRAZOLAM

REACTIONS (8)
  - Polyneuropathy [Unknown]
  - Chronic obstructive pulmonary disease [Unknown]
  - Respiratory failure [Unknown]
  - Device malfunction [Unknown]
  - Bronchospasm [Recovering/Resolving]
  - Pneumothorax [Not Recovered/Not Resolved]
  - Pneumonia [Not Recovered/Not Resolved]
  - Drug dose omission by device [Unknown]

NARRATIVE: CASE EVENT DATE: 201912
